FAERS Safety Report 6679696-X (Version None)
Quarter: 2010Q2

REPORT INFORMATION
  Report Type: 
  Country: None (occurrence: None)
  Receive Date: 20100409
  Receipt Date: 20090710
  Transmission Date: 20101027
  Serious: No
  Sender: FDA-Public Use
  Company Number: 2009-00468

PATIENT
  Age: 69 Year
  Sex: Male
  Weight: 79.3795 kg

DRUGS (2)
  1. ZICAM COLD REMEDY NASAL GEL [Suspect]
     Dosage: QID - ^ABOUT 5 YEARS AGO^-(?)
  2. SOMETHING FOR BLOOD PRESSURE [Concomitant]

REACTIONS (1)
  - ANOSMIA [None]
